FAERS Safety Report 4791481-2 (Version None)
Quarter: 2005Q4

REPORT INFORMATION
  Report Type: 
  Country: None (occurrence: None)
  Receive Date: 20051007
  Receipt Date: 20040929
  Transmission Date: 20060501
  Serious: No
  Sender: FDA-Public Use
  Company Number: US-BRISTOL-MYERS SQUIBB COMPANY-12716270

PATIENT
  Age: 59 Year
  Sex: Female
  Weight: 77 kg

DRUGS (6)
  1. AVAPRO [Suspect]
     Indication: HYPERTENSION
     Dosage: CONSUMER STARTED AVAPRO 2-3 WEEKS AGO
     Route: 048
  2. ZETIA [Concomitant]
  3. ASPIRIN [Concomitant]
  4. ATIVAN [Concomitant]
  5. ZOLOFT [Concomitant]
  6. PAIN MEDICATIONS [Concomitant]

REACTIONS (2)
  - INSOMNIA [None]
  - NERVOUSNESS [None]
